FAERS Safety Report 4354504-0 (Version None)
Quarter: 2004Q2

REPORT INFORMATION
  Report Type: 
  Country: None (occurrence: None)
  Receive Date: 20040503
  Receipt Date: 20040420
  Transmission Date: 20050107
  Serious: Yes (Death, Hospitalization)
  Sender: FDA-Public Use
  Company Number: 163-20785-04040549

PATIENT
  Age: 63 Year
  Sex: Male

DRUGS (8)
  1. THALOMID [Suspect]
     Indication: GLIOBLASTOMA MULTIFORME
     Dosage: 400 MG, QHS AM, ORAL
     Route: 048
     Dates: start: 20040101, end: 20040317
  2. CPT-11 (IRINOTECAN) [Suspect]
     Indication: GLIOBLASTOMA MULTIFORME
     Dosage: 235 MG, Q WEEK X4
     Dates: start: 20040101, end: 20040305
  3. ZOSYN [Concomitant]
  4. ASPIRIN [Concomitant]
  5. COUMADIN (WARFARIN SDOIUM) [Concomitant]
  6. DEXMETAHSONE (DEXAMETHSONE) [Concomitant]
  7. PEPCID [Concomitant]
  8. RITALIN (METHYLPHENIDATE HYDROCHJLORIDE) [Concomitant]

REACTIONS (16)
  - ATRIAL FIBRILLATION [None]
  - COUGH [None]
  - CRACKLES LUNG [None]
  - CYANOSIS [None]
  - FACIAL PALSY [None]
  - FAILURE TO THRIVE [None]
  - FATIGUE [None]
  - GAIT DISTURBANCE [None]
  - GRAND MAL CONVULSION [None]
  - HEMIPARESIS [None]
  - INTERNATIONAL NORMALISED RATIO INCREASED [None]
  - LUNG INFILTRATION [None]
  - OPPORTUNISTIC INFECTION [None]
  - RESPIRATORY ARREST [None]
  - SPEECH DISORDER [None]
  - URINARY INCONTINENCE [None]
